FAERS Safety Report 7114040-5 (Version None)
Quarter: 2010Q4

REPORT INFORMATION
  Report Type: 
  Country: None (occurrence: None)
  Receive Date: 20101119
  Receipt Date: 20101112
  Transmission Date: 20110411
  Serious: Yes (Hospitalization)
  Sender: FDA-Public Use
  Company Number: Z0006257A

PATIENT
  Sex: Male
  Weight: 63.3 kg

DRUGS (14)
  1. PAZOPANIB [Suspect]
     Indication: RENAL CELL CARCINOMA
     Dosage: 800MG PER DAY
     Route: 048
     Dates: start: 20091224
  2. FENOFIBRATE [Concomitant]
     Indication: HYPERLIPIDAEMIA
     Dosage: 134MG AFTER MEALS
     Route: 048
     Dates: start: 20091218
  3. ALLOPURINOL [Concomitant]
     Indication: HYPERURICAEMIA
     Dosage: 100MG IN THE MORNING
     Route: 048
     Dates: start: 20091218
  4. ENALAPRIL MALEATE [Concomitant]
     Indication: HYPERTENSION
     Dosage: 10MG IN THE MORNING
     Route: 048
     Dates: start: 20091218
  5. EZETIMIBE [Concomitant]
     Indication: HYPERLIPIDAEMIA
     Dosage: 10MG IN THE MORNING
     Route: 048
     Dates: start: 20091218
  6. HEPARIN [Concomitant]
     Indication: PALMAR-PLANTAR ERYTHRODYSAESTHESIA SYNDROME
     Route: 062
     Dates: start: 20091228
  7. ITOPRIDE HYDROCHLORIDE [Concomitant]
     Indication: DECREASED APPETITE
     Dosage: 150MG BEFORE MEALS
     Route: 048
     Dates: start: 20091231
  8. FAMOTIDINE [Concomitant]
     Indication: ABDOMINAL PAIN UPPER
     Dosage: 20MG TWICE PER DAY
     Route: 048
     Dates: start: 20100102
  9. AMLODIPINE BESYLATE [Concomitant]
     Indication: HYPERTENSION
     Dosage: 5MG IN THE MORNING
     Route: 048
     Dates: start: 20100105
  10. FLUTICASONE PROPIONATE [Concomitant]
     Indication: EPISTAXIS
     Route: 065
     Dates: start: 20100208
  11. LEVOTHYROXINE SODIUM [Concomitant]
     Indication: HYPOTHYROIDISM
     Dosage: 50MCG PER DAY
     Route: 048
     Dates: start: 20100514
  12. LOPERAMIDE HYDROCHLORIDE [Concomitant]
     Indication: DIARRHOEA
     Dosage: 1MG THREE TIMES PER DAY
     Route: 048
     Dates: start: 20100729
  13. RENIVACE [Concomitant]
     Indication: HYPERTENSION
     Dosage: 5MG PER DAY
     Route: 048
     Dates: start: 20100819
  14. LATANOPROST [Concomitant]
     Indication: GLAUCOMA
     Dosage: .005PCT THREE TIMES PER DAY
     Route: 065
     Dates: start: 20100910

REACTIONS (1)
  - ILEUS [None]
